FAERS Safety Report 9705789 (Version 1)
Quarter: 2013Q4

REPORT INFORMATION
  Report Type: Spontaneous
  Country: US (occurrence: US)
  Receive Date: 20131122
  Receipt Date: 20131122
  Transmission Date: 20140711
  Serious: Yes (Other)
  Sender: FDA-Public Use
  Company Number: US-ACTAVIS-2013-21019

PATIENT
  Age: 76 Year
  Sex: Male

DRUGS (2)
  1. ALENDRONATE SODIUM (WATSON LABORATORIES) [Suspect]
     Indication: OSTEOPOROSIS
     Dosage: 70 MG, 1/WEEK
     Route: 048
     Dates: start: 201310
  2. TRAMADOL [Concomitant]
     Indication: PRODUCT USED FOR UNKNOWN INDICATION
     Dosage: UNK, UNKNOWN
     Route: 048
     Dates: start: 201310

REACTIONS (1)
  - Hallucination [Not Recovered/Not Resolved]
